FAERS Safety Report 5196857-X (Version None)
Quarter: 2006Q4

REPORT INFORMATION
  Report Type: 
  Country: None (occurrence: None)
  Receive Date: 20061227
  Receipt Date: 20061214
  Transmission Date: 20070319
  Serious: Yes (Other)
  Sender: FDA-Public Use
  Company Number: 2006154704

PATIENT
  Age: 55 Year
  Sex: Female
  Weight: 113.3993 kg

DRUGS (10)
  1. NORVASC [Suspect]
     Indication: HYPERTENSION
     Dosage: 2. 5 MG (2.5 MG, 1 IN 1 D)  3 YEARS AGO
  2. CAPTOPRIL [Suspect]
  3. CLONIDINE [Suspect]
  4. ATENOLOL [Suspect]
  5. PROTONIX [Concomitant]
  6. INSULIN [Concomitant]
  7. LIPITOR [Concomitant]
  8. ASPIRIN [Concomitant]
  9. IBUPROFEN [Concomitant]
  10. METFORMIN HCL [Concomitant]

REACTIONS (1)
  - BLOOD PRESSURE INCREASED [None]
